FAERS Safety Report 25400902 (Version 1)
Quarter: 2025Q2

REPORT INFORMATION
  Report Type: Report from Study
  Country: BE (occurrence: BE)
  Receive Date: 20250605
  Receipt Date: 20250605
  Transmission Date: 20250717
  Serious: Yes (Hospitalization)
  Sender: ROCHE
  Company Number: None

PATIENT
  Age: 63 Year
  Sex: Male
  Weight: 72.8 kg

DRUGS (16)
  1. BEVACIZUMAB [Suspect]
     Active Substance: BEVACIZUMAB
     Indication: Colorectal cancer
     Route: 042
     Dates: start: 20250107, end: 20250225
  2. LEUCOVORIN [Suspect]
     Active Substance: LEUCOVORIN\LEUCOVORIN CALCIUM
     Indication: Colorectal cancer
     Route: 042
     Dates: start: 20250107, end: 20250225
  3. FLUOROURACIL [Suspect]
     Active Substance: FLUOROURACIL
     Indication: Colorectal cancer
     Route: 042
     Dates: start: 20250107, end: 20250225
  4. TELISOTUZUMAB [Suspect]
     Active Substance: TELISOTUZUMAB
     Indication: Colorectal cancer
     Route: 042
     Dates: start: 20250107, end: 20250211
  5. DAFALGAN [Concomitant]
     Active Substance: ACETAMINOPHEN
     Indication: Chest pain
     Route: 065
     Dates: start: 2018
  6. RIVOTRIL [Concomitant]
     Active Substance: CLONAZEPAM
     Indication: Progressive multifocal leukoencephalopathy
     Route: 065
     Dates: start: 20180730
  7. FOLIC ACID [Concomitant]
     Active Substance: FOLIC ACID
     Indication: Folate deficiency
     Route: 065
     Dates: start: 20210810
  8. ATORVASTATIN [Concomitant]
     Active Substance: ATORVASTATIN
     Route: 065
     Dates: start: 2018
  9. KEPPRA [Concomitant]
     Active Substance: LEVETIRACETAM
     Indication: Progressive multifocal leukoencephalopathy
     Route: 065
     Dates: start: 20241112
  10. KEPPRA [Concomitant]
     Active Substance: LEVETIRACETAM
     Route: 065
     Dates: start: 20180626
  11. Co Bisoprolol [Concomitant]
     Indication: Hypertension
     Dosage: 5/12.5 MG
     Route: 065
     Dates: start: 2018
  12. PANTOPRAZOLE [Concomitant]
     Active Substance: PANTOPRAZOLE
     Indication: Prophylaxis
     Route: 065
     Dates: start: 20180730
  13. AUGMENTIN [Concomitant]
     Active Substance: AMOXICILLIN\CLAVULANATE POTASSIUM
     Indication: Antiviral prophylaxis
     Route: 065
     Dates: start: 20250311, end: 20250318
  14. Ultra K [Concomitant]
     Indication: Hypokalaemia
     Route: 065
     Dates: start: 20250226, end: 20250303
  15. KCL [Concomitant]
     Active Substance: POTASSIUM CHLORIDE
     Indication: Hypokalaemia
     Route: 065
     Dates: start: 20250311, end: 20250311
  16. MAGNESIUM SULFATE [Concomitant]
     Active Substance: MAGNESIUM SULFATE
     Indication: Hypokalaemia
     Route: 065
     Dates: start: 20250311, end: 20250311

REACTIONS (1)
  - Respiratory tract infection [Recovered/Resolved with Sequelae]
